FAERS Safety Report 22239710 (Version 1)
Quarter: 2023Q2

REPORT INFORMATION
  Report Type: Spontaneous
  Country: US (occurrence: US)
  Receive Date: 20230421
  Receipt Date: 20230421
  Transmission Date: 20230721
  Serious: No
  Sender: FDA-Public Use
  Company Number: US-SA-SAC20230418001087

PATIENT
  Sex: Male
  Weight: 86.63 kg

DRUGS (2)
  1. DUPIXENT [Suspect]
     Active Substance: DUPILUMAB
     Indication: Asthma
     Dosage: 200MG, QOW
     Route: 058
     Dates: start: 20200626, end: 202303
  2. XOLAIR [Concomitant]
     Active Substance: OMALIZUMAB
     Indication: Asthma
     Dosage: UNK

REACTIONS (4)
  - Illness [Recovering/Resolving]
  - White blood cell count abnormal [Recovering/Resolving]
  - Weight decreased [Recovering/Resolving]
  - Eosinophil count increased [Recovering/Resolving]
